FAERS Safety Report 15923925 (Version 1)
Quarter: 2019Q1

REPORT INFORMATION
  Report Type: Spontaneous
  Country: US (occurrence: US)
  Receive Date: 20190206
  Receipt Date: 20190206
  Transmission Date: 20190417
  Serious: Yes (Other)
  Sender: FDA-Public Use
  Company Number: None

PATIENT
  Age: 88 Year
  Sex: Female
  Weight: 60.75 kg

DRUGS (18)
  1. PERFECT FOOD RAW ALKALIZER BY GARDEN OF LIF [Concomitant]
  2. LUTEIN [Concomitant]
     Active Substance: LUTEIN
  3. ELIQUIS [Concomitant]
     Active Substance: APIXABAN
  4. B-COMPLES [Concomitant]
  5. GREEN DRINK [Concomitant]
  6. LEVOTHYROXINE. [Suspect]
     Active Substance: LEVOTHYROXINE
  7. VITAMIN C [Concomitant]
     Active Substance: ASCORBIC ACID
  8. VIT D 10,000 [Concomitant]
  9. L-GLUTAMINE [Concomitant]
  10. AMLODIPINE [Concomitant]
     Active Substance: AMLODIPINE BESYLATE
  11. GREEN DRINK [Concomitant]
  12. B-12 SUBLINGUAL [Concomitant]
     Active Substance: CYANOCOBALAMIN
  13. GRAPE SED EXTRACT [Concomitant]
  14. ESTER C [Concomitant]
  15. AMIODARONE [Suspect]
     Active Substance: AMIODARONE
     Indication: ATRIAL FIBRILLATION
     Dates: start: 20120801, end: 20150301
  16. METOPROLOL. [Concomitant]
     Active Substance: METOPROLOL
  17. VITAMIS [Concomitant]
  18. BETA CAROTENE [Concomitant]

REACTIONS (5)
  - Asthenopia [None]
  - Macular degeneration [None]
  - Eye swelling [None]
  - Neoplasm of orbit [None]
  - B-cell lymphoma [None]

NARRATIVE: CASE EVENT DATE: 20150701
